FAERS Safety Report 9283134 (Version 1)
Quarter: 2013Q2

REPORT INFORMATION
  Report Type: Spontaneous
  Country: US (occurrence: US)
  Receive Date: 20130510
  Receipt Date: 20130510
  Transmission Date: 20140414
  Serious: Yes (Other)
  Sender: FDA-Public Use
  Company Number: US-GLAXOSMITHKLINE-A0982482A

PATIENT
  Age: 63 Year
  Sex: Female

DRUGS (11)
  1. TYKERB [Suspect]
     Indication: BREAST CANCER
     Dosage: 1250MG PER DAY
     Route: 048
     Dates: start: 201106
  2. GEMFIBROZIL [Concomitant]
  3. GABAPENTIN [Concomitant]
  4. METFORMIN [Concomitant]
  5. ATENOLOL [Concomitant]
  6. FUROSEMIDE [Concomitant]
  7. POTASSIUM [Concomitant]
  8. ALLOPURINOL [Concomitant]
  9. AMLODIPINE [Concomitant]
  10. ADVAIR [Concomitant]
  11. OXYCODONE [Concomitant]

REACTIONS (2)
  - Anaphylactic reaction [Unknown]
  - Diarrhoea [Unknown]
